FAERS Safety Report 10249212 (Version 1)
Quarter: 2014Q2

REPORT INFORMATION
  Report Type: Spontaneous
  Country: IE (occurrence: IE)
  Receive Date: 20140620
  Receipt Date: 20140620
  Transmission Date: 20141212
  Serious: Yes (Death)
  Sender: FDA-Public Use
  Company Number: IE-AMGEN-IRLSP2014045920

PATIENT
  Age: 61 Year
  Sex: Male

DRUGS (1)
  1. NEULASTA [Suspect]
     Indication: PHARYNGEAL CANCER
     Dosage: 6 MG, UNK, POST CHEMOTHERAPY
     Route: 058
     Dates: start: 20101213

REACTIONS (1)
  - Death [Fatal]
